FAERS Safety Report 18037091 (Version 1)
Quarter: 2020Q3

REPORT INFORMATION
  Report Type: Spontaneous
  Country: AU (occurrence: AU)
  Receive Date: 20200717
  Receipt Date: 20200717
  Transmission Date: 20201103
  Serious: Yes (Life-Threatening, Hospitalization, Other)
  Sender: FDA-Public Use
  Company Number: AU-JNJFOC-20200714309

PATIENT
  Age: 45 Year
  Sex: Female
  Weight: 99 kg

DRUGS (9)
  1. INVEGA [Suspect]
     Active Substance: PALIPERIDONE
     Indication: SCHIZOPHRENIA
     Route: 048
  2. INVEGA TRINZA [Suspect]
     Active Substance: PALIPERIDONE PALMITATE
  3. FRUSEMIDE                          /00032601/ [Concomitant]
     Active Substance: FUROSEMIDE
  4. AMLODIPINE [Concomitant]
     Active Substance: AMLODIPINE BESYLATE
  5. PARACETAMOL [Concomitant]
     Active Substance: ACETAMINOPHEN
  6. QUETIAPINE. [Concomitant]
     Active Substance: QUETIAPINE
  7. INVEGA TRINZA [Suspect]
     Active Substance: PALIPERIDONE PALMITATE
     Indication: SCHIZOPHRENIA
     Route: 030
  8. INVEGA TRINZA [Suspect]
     Active Substance: PALIPERIDONE PALMITATE
  9. VIT D [Concomitant]
     Active Substance: VITAMIN D NOS

REACTIONS (2)
  - Metabolic alkalosis [Unknown]
  - Respiratory failure [Unknown]
